FAERS Safety Report 15476952 (Version 2)
Quarter: 2022Q1

REPORT INFORMATION
  Report Type: Spontaneous
  Country: BR (occurrence: BR)
  Receive Date: 20181009
  Receipt Date: 20220128
  Transmission Date: 20220423
  Serious: Yes (Hospitalization, Other)
  Sender: FDA-Public Use
  Company Number: BR-TEVA-2018-BR-962299

PATIENT
  Age: 64 Year
  Sex: Female
  Weight: 59 kg

DRUGS (11)
  1. ACTONEL [Suspect]
     Active Substance: RISEDRONATE SODIUM
     Indication: Osteoporosis
     Route: 048
     Dates: start: 20180928, end: 20180928
  2. ALENDRONATE SODIUM [Suspect]
     Active Substance: ALENDRONATE SODIUM
     Indication: Osteoporosis
     Route: 048
     Dates: start: 20180928
  3. OSCAL D [Concomitant]
     Active Substance: CALCIUM CARBONATE\CHOLECALCIFEROL
     Indication: Osteoporosis
     Dosage: 2 DOSAGE FORMS DAILY; 1 DOSAGE FORM=500MG+400IU (CALCIUM CARBONATE/COLECALCIFEROL)
     Route: 048
     Dates: start: 20180913
  4. Fluxocor 20mg [Concomitant]
     Indication: Hypertension
     Dosage: 20 MILLIGRAM DAILY; STARTED 2 YEARS AGO (ESTIMATED DATE 2016)?STOP DATE THIS YEAR (ESTIMATED DATE: 2
     Route: 048
  5. Lipitor 10 mg [Concomitant]
     Indication: Blood cholesterol
     Dosage: 10 MILLIGRAM DAILY; START DATE 3 YEARS AGO (ESTIMATED DATE 2015)
     Route: 048
  6. SYNTHROID [Concomitant]
     Active Substance: LEVOTHYROXINE SODIUM
     Indication: Hypothyroidism
     Dosage: ONE TABLET DURING FASTING?STARTED 5 YEARS AGO(ESTIMATED DATE 2013)?END DATE APPROXIMATELY AUG-2018
     Route: 048
  7. SYNTHROID [Concomitant]
     Active Substance: LEVOTHYROXINE SODIUM
     Indication: Hypothyroidism
     Dosage: STARTED APPROXIMATELY ON AUG-2018
  8. OLMESARTAN MEDOXOMIL [Concomitant]
     Active Substance: OLMESARTAN MEDOXOMIL
  9. LIVALO [Concomitant]
     Active Substance: PITAVASTATIN CALCIUM
  10. Aradois 50 mg [Concomitant]
  11. METOPROLOL SUCCINATE [Concomitant]
     Active Substance: METOPROLOL SUCCINATE
     Dosage: STARTED THIS YEAR (ESTIMATED DATE: 2018)

REACTIONS (18)
  - Throat irritation [Not Recovered/Not Resolved]
  - Influenza [Not Recovered/Not Resolved]
  - Sinusitis [Not Recovered/Not Resolved]
  - Abdominal distension [Recovered/Resolved]
  - Rhinitis [Unknown]
  - Headache [Unknown]
  - Muscle spasms [Recovered/Resolved]
  - Productive cough [Recovered/Resolved]
  - Cough [Recovered/Resolved]
  - Movement disorder [Recovered/Resolved]
  - Nausea [Recovered/Resolved]
  - Retching [Recovered/Resolved]
  - Abdominal tenderness [Recovered/Resolved]
  - Diarrhoea [Recovered/Resolved]
  - Vomiting [Recovered/Resolved]
  - Decreased appetite [Recovered/Resolved]
  - Abdominal pain [Recovered/Resolved]
  - Abdominal discomfort [Recovered/Resolved]

NARRATIVE: CASE EVENT DATE: 20180928
